FAERS Safety Report 6968862-1 (Version None)
Quarter: 2010Q3

REPORT INFORMATION
  Report Type: 
  Country: None (occurrence: None)
  Receive Date: 20100903
  Receipt Date: 20100903
  Transmission Date: 20110219
  Serious: Yes (Disabling)
  Sender: FDA-Public Use
  Company Number: None

PATIENT
  Age: 42 Year
  Sex: Female
  Weight: 52.6173 kg

DRUGS (2)
  1. MIRENA [Suspect]
     Indication: CONTRACEPTION
     Dates: start: 20040425, end: 20040930
  2. MIRENA [Suspect]
     Indication: CONTRACEPTION
     Dates: start: 20100225, end: 20100830

REACTIONS (10)
  - ASTHMA [None]
  - CONDITION AGGRAVATED [None]
  - DYSPNOEA [None]
  - ECZEMA [None]
  - HYPERSENSITIVITY [None]
  - MIGRAINE [None]
  - PLEURAL EFFUSION [None]
  - SEBORRHOEIC DERMATITIS [None]
  - WAIST CIRCUMFERENCE INCREASED [None]
  - WEIGHT INCREASED [None]
